FAERS Safety Report 5149709-5 (Version None)
Quarter: 2006Q4

REPORT INFORMATION
  Report Type: 
  Country: None (occurrence: None)
  Receive Date: 20061113
  Receipt Date: 20060626
  Transmission Date: 20070319
  Serious: Yes (Disabling)
  Sender: FDA-Public Use
  Company Number: PT-BRISTOL-MYERS SQUIBB COMPANY-13432448

PATIENT
  Age: 68 Year
  Sex: Male

DRUGS (5)
  1. ERBITUX [Suspect]
     Indication: SQUAMOUS CELL CARCINOMA
     Route: 042
     Dates: start: 20060502
  2. RADIOTHERAPY [Suspect]
     Indication: SQUAMOUS CELL CARCINOMA
  3. MAGNESIUM [Concomitant]
  4. GABAPENTIN [Concomitant]
  5. NIMESULIDE [Concomitant]

REACTIONS (1)
  - NEUROTOXICITY [None]
